FAERS Safety Report 17943983 (Version 1)
Quarter: 2020Q2

REPORT INFORMATION
  Report Type: Spontaneous
  Country: SE (occurrence: SE)
  Receive Date: 20200625
  Receipt Date: 20200625
  Transmission Date: 20200714
  Serious: Yes (Other)
  Sender: FDA-Public Use
  Company Number: SE-MYLANLABS-2020M1057996

PATIENT
  Age: 89 Year
  Sex: Male

DRUGS (1)
  1. BUPREMYL 10 MIKROGRAMMAA/TUNTI DEPOTLAASTARI [Suspect]
     Active Substance: BUPRENORPHINE
     Indication: PAIN
     Dosage: UNK

REACTIONS (4)
  - Product substitution issue [Not Recovered/Not Resolved]
  - Application site erythema [Not Recovered/Not Resolved]
  - Application site swelling [Not Recovered/Not Resolved]
  - Application site vesicles [Not Recovered/Not Resolved]

NARRATIVE: CASE EVENT DATE: 20200519
